FAERS Safety Report 7202118-7 (Version None)
Quarter: 2010Q4

REPORT INFORMATION
  Report Type: 
  Country: None (occurrence: None)
  Receive Date: 20101216
  Receipt Date: 20100611
  Transmission Date: 20110411
  Serious: No
  Sender: FDA-Public Use
  Company Number: 20096060

PATIENT
  Age: 29 Year
  Sex: Male

DRUGS (1)
  1. LIORESAL [Suspect]
     Indication: MUSCLE SPASTICITY
     Dosage: 99.93 MCG, DAILY, INTRATHECAL
     Route: 037

REACTIONS (9)
  - CONDITION AGGRAVATED [None]
  - DEVICE RELATED INFECTION [None]
  - IMPLANT SITE DISCHARGE [None]
  - IMPLANT SITE EFFUSION [None]
  - IMPLANT SITE OEDEMA [None]
  - IMPLANT SITE WARMTH [None]
  - MUSCLE SPASTICITY [None]
  - PURULENCE [None]
  - PYREXIA [None]
